FAERS Safety Report 6582078-2 (Version None)
Quarter: 2010Q1

REPORT INFORMATION
  Report Type: 
  Country: None (occurrence: None)
  Receive Date: 20100216
  Receipt Date: 20100202
  Transmission Date: 20100710
  Serious: Yes (Hospitalization)
  Sender: FDA-Public Use
  Company Number: TR-RANBAXY-2010RR-30997

PATIENT
  Age: 61 Year
  Sex: Female

DRUGS (1)
  1. CEFUROXIME [Suspect]
     Dosage: 250 MG, UNK
     Route: 048

REACTIONS (2)
  - ANAPHYLACTIC REACTION [None]
  - KOUNIS SYNDROME [None]
